FAERS Safety Report 13895227 (Version 1)
Quarter: 2017Q3

REPORT INFORMATION
  Report Type: Spontaneous
  Country: US (occurrence: None)
  Receive Date: 20170817
  Receipt Date: 20170817
  Transmission Date: 20171127
  Serious: Yes (Hospitalization)
  Sender: FDA-Public Use
  Company Number: None

PATIENT
  Age: 56 Year
  Sex: Male

DRUGS (1)
  1. HUMIRA [Suspect]
     Active Substance: ADALIMUMAB
     Indication: RHEUMATOID ARTHRITIS
     Dosage: 40MG/0.8 ML INJECT CONTENTS OF ONE PEN (40 MG) SUBCUTANEOUS
     Route: 058
     Dates: start: 20161013

REACTIONS (5)
  - Escherichia infection [None]
  - Renal disorder [None]
  - Blood disorder [None]
  - Urinary tract infection [None]
  - Pyrexia [None]

NARRATIVE: CASE EVENT DATE: 20170619
